FAERS Safety Report 9279495 (Version 6)
Quarter: 2014Q2

REPORT INFORMATION
  Report Type: Report from Study
  Country: DE (occurrence: DE)
  Receive Date: 20130508
  Receipt Date: 20140521
  Transmission Date: 20141212
  Serious: Yes (Other)
  Sender: FDA-Public Use
  Company Number: PHHY2013DE045326

PATIENT
  Sex: Female
  Weight: 62 kg

DRUGS (17)
  1. AFINITOR [Suspect]
     Indication: BREAST CANCER METASTATIC
     Dosage: 10 MG, QD
     Route: 048
     Dates: start: 20130228, end: 20130417
  2. AFINITOR [Suspect]
     Dosage: 5 MG, QD
     Route: 048
     Dates: start: 20130518, end: 20130628
  3. AFINITOR [Suspect]
     Dosage: 5 MG, QD
     Route: 048
     Dates: start: 20130630, end: 20130720
  4. AFINITOR [Suspect]
     Dosage: 5 MG, QD
     Route: 048
     Dates: start: 20130728, end: 20131020
  5. AFINITOR [Suspect]
     Dosage: 10 MG, QD
     Route: 048
     Dates: start: 20131021, end: 20140122
  6. AFINITOR [Suspect]
     Dosage: 5 MG, QD
     Route: 048
     Dates: start: 20140123, end: 20140404
  7. AROMASIN [Suspect]
     Indication: BREAST CANCER METASTATIC
     Dosage: 25 MG, QD
     Route: 048
     Dates: start: 20130228, end: 20130628
  8. AROMASIN [Suspect]
     Dosage: 25 MG, QD
     Route: 048
     Dates: start: 20130630, end: 20130720
  9. AROMASIN [Suspect]
     Dosage: 25 MG, QD
     Route: 048
     Dates: start: 20130728, end: 20140404
  10. BISPHOSPHONATES [Concomitant]
     Indication: BONE DISORDER
  11. LOMIR [Concomitant]
     Indication: HYPERTENSION
     Dosage: 5 MG
     Dates: start: 1983, end: 20130404
  12. KINZALMONO [Concomitant]
     Indication: HYPERTENSION
     Dosage: 40 MG
     Dates: start: 2011, end: 20130404
  13. OMEPRAZOLE [Concomitant]
     Indication: HYPERTENSION
     Route: 048
     Dates: start: 201107
  14. OXAZEPAM [Concomitant]
     Dates: start: 201107
  15. ARTELAC [Concomitant]
     Dates: start: 201209
  16. CRATAEGUTT [Concomitant]
     Dates: start: 201206
  17. VITAMIN D3 [Concomitant]
     Dates: start: 201203

REACTIONS (13)
  - Peripheral sensory neuropathy [Not Recovered/Not Resolved]
  - Lacrimation increased [Recovered/Resolved]
  - Eye pruritus [Recovered/Resolved]
  - Nasal mucosal disorder [Recovered/Resolved]
  - Fatigue [Not Recovered/Not Resolved]
  - Nail disorder [Recovered/Resolved]
  - Headache [Recovered/Resolved]
  - Arthralgia [Not Recovered/Not Resolved]
  - Dysgeusia [Not Recovered/Not Resolved]
  - Dyspnoea [Not Recovered/Not Resolved]
  - Diarrhoea [Recovered/Resolved]
  - Rash [Recovered/Resolved]
  - Insomnia [Not Recovered/Not Resolved]
